FAERS Safety Report 21953300 (Version 5)
Quarter: 2023Q2

REPORT INFORMATION
  Report Type: Report from Study
  Country: US (occurrence: US)
  Receive Date: 20230204
  Receipt Date: 20230412
  Transmission Date: 20230722
  Serious: Yes (Hospitalization)
  Sender: FDA-Public Use
  Company Number: US-002147023-NVSC2023US024805

PATIENT
  Sex: Male

DRUGS (1)
  1. ENTRESTO [Suspect]
     Active Substance: SACUBITRIL\VALSARTAN
     Indication: Product used for unknown indication
     Dosage: 1 DOSAGE FORM, BID (49/51 MG)
     Route: 048
     Dates: start: 202201

REACTIONS (8)
  - Medical device site joint infection [Unknown]
  - Throat clearing [Recovered/Resolved with Sequelae]
  - Peripheral swelling [Unknown]
  - Sinus disorder [Unknown]
  - Nasopharyngitis [Unknown]
  - Cough [Unknown]
  - Gait disturbance [Unknown]
  - Pain in extremity [Unknown]
